FAERS Safety Report 5615651-6 (Version None)
Quarter: 2008Q1

REPORT INFORMATION
  Report Type: 
  Country: None (occurrence: None)
  Receive Date: 20080206
  Receipt Date: 20080128
  Transmission Date: 20080703
  Serious: Yes (Hospitalization, Other)
  Sender: FDA-Public Use
  Company Number: CS-NOVOPROD-269400

PATIENT
  Sex: Female
  Weight: 75.5 kg

DRUGS (5)
  1. NOVOLOG MIX 70/30 [Suspect]
     Indication: TYPE 1 DIABETES MELLITUS
     Dosage: 6 IU, QD
     Route: 058
     Dates: start: 20060424, end: 20060627
  2. NOVOLOG MIX 70/30 [Suspect]
     Dosage: 14 IU, QD
     Route: 058
     Dates: start: 20060627, end: 20060822
  3. NOVOLOG MIX 70/30 [Suspect]
     Dosage: 16 IU, QD (8+4+4)
     Route: 058
     Dates: start: 20060822, end: 20061212
  4. NOVOLOG MIX 70/30 [Suspect]
     Dosage: 70 IU, QD (28+18+24)
     Route: 058
     Dates: start: 20061212, end: 20070116
  5. NOVOLOG MIX 70/30 [Suspect]
     Dosage: 84 IU, QD
     Route: 058
     Dates: start: 20070116

REACTIONS (1)
  - ABORTION INDUCED [None]
